FAERS Safety Report 23813049 (Version 1)
Quarter: 2024Q2

REPORT INFORMATION
  Report Type: Spontaneous
  Country: US (occurrence: US)
  Receive Date: 20240503
  Receipt Date: 20240503
  Transmission Date: 20240715
  Serious: No
  Sender: FDA-Public Use
  Company Number: US-AMNEAL PHARMACEUTICALS-2023-AMRX-01655

PATIENT
  Sex: Male
  Weight: 8.16 kg

DRUGS (3)
  1. VIGABATRIN [Suspect]
     Active Substance: VIGABATRIN
     Indication: Epilepsy
     Dosage: 500 MG, 12 ML OF DILUTED SOLUTION TWICE A DAY
     Route: 048
     Dates: start: 20230403
  2. SABRIL [Concomitant]
     Active Substance: VIGABATRIN
     Indication: Product used for unknown indication
     Route: 065
  3. METRONIDAZOLE BENZOATE [Concomitant]
     Active Substance: METRONIDAZOLE BENZOATE
     Indication: Congenital megacolon
     Dosage: 1.8 ML 03 TIMES
     Route: 065

REACTIONS (10)
  - Feeling abnormal [Unknown]
  - Screaming [Unknown]
  - Disturbance in attention [Unknown]
  - Product dose omission issue [Unknown]
  - Cough [Recovering/Resolving]
  - Decreased appetite [Recovering/Resolving]
  - Somnolence [Recovering/Resolving]
  - Product use issue [Unknown]
  - Insomnia [Recovering/Resolving]
  - Staring [Recovering/Resolving]
